FAERS Safety Report 16191861 (Version 1)
Quarter: 2019Q2

REPORT INFORMATION
  Report Type: Spontaneous
  Country: FR (occurrence: FR)
  Receive Date: 20190412
  Receipt Date: 20190412
  Transmission Date: 20190711
  Serious: Yes (Hospitalization)
  Sender: FDA-Public Use
  Company Number: FR-MYLANLABS-2019M1034241

PATIENT
  Age: 67 Year
  Sex: Male
  Weight: 68 kg

DRUGS (9)
  1. VINCRISTINE HOSPIRA [Concomitant]
     Active Substance: VINCRISTINE
     Indication: DIFFUSE LARGE B-CELL LYMPHOMA
     Dosage: 2 MILLIGRAM, CYCLE
     Route: 041
     Dates: start: 20180811, end: 20180811
  2. RIXATHON [Concomitant]
     Active Substance: RITUXIMAB
     Indication: DIFFUSE LARGE B-CELL LYMPHOMA
     Dosage: 700 MILLIGRAM, CYCLE
     Route: 041
     Dates: start: 20180810, end: 20180810
  3. DOLIPRANE [Concomitant]
     Active Substance: ACETAMINOPHEN
     Indication: PAIN
     Route: 048
  4. PHLOROGLUCINOL ARROW [Concomitant]
     Active Substance: PHLOROGLUCINOL
     Indication: ABDOMINAL PAIN
     Route: 048
  5. DOXORUBICINE TEVA [Concomitant]
     Active Substance: DOXORUBICIN
     Indication: DIFFUSE LARGE B-CELL LYMPHOMA
     Dosage: 90 MILLIGRAM, CYCLE
     Route: 041
     Dates: start: 20180811, end: 20180811
  6. ENDOXAN                            /00021101/ [Concomitant]
     Active Substance: CYCLOPHOSPHAMIDE
     Indication: DIFFUSE LARGE B-CELL LYMPHOMA
     Dosage: 1380 MILLIGRAM, CYCLE
     Route: 041
     Dates: start: 20180811, end: 20180811
  7. VALACYCLOVIR [Concomitant]
     Active Substance: VALACYCLOVIR HYDROCHLORIDE
     Indication: ANTIVIRAL PROPHYLAXIS
     Dosage: 500 MILLIGRAM, QD
     Route: 048
     Dates: start: 20180806
  8. ONDANSETRON [Concomitant]
     Active Substance: ONDANSETRON
     Indication: NAUSEA
  9. METHOTREXATE MYLAN 100 MG/ML, SOLUTION FOR INJECTION [Suspect]
     Active Substance: METHOTREXATE
     Indication: DIFFUSE LARGE B-CELL LYMPHOMA
     Dosage: 5400 MILLIGRAM, CYCLE
     Route: 041
     Dates: start: 20180810, end: 20180810

REACTIONS (4)
  - Hepatocellular injury [Recovered/Resolved]
  - Cholestasis [Not Recovered/Not Resolved]
  - Incorrect disposal of product [Recovered/Resolved]
  - Acute kidney injury [Recovering/Resolving]

NARRATIVE: CASE EVENT DATE: 20180811
